FAERS Safety Report 16747024 (Version 1)
Quarter: 2019Q3

REPORT INFORMATION
  Report Type: Other
  Country: US (occurrence: US)
  Receive Date: 20190827
  Receipt Date: 20190827
  Transmission Date: 20191005
  Serious: Yes (Other)
  Sender: FDA-Public Use
  Company Number: US-EMD SERONO-9112223

PATIENT
  Age: 33 Year
  Sex: Male

DRUGS (4)
  1. STANOZOLOL [Suspect]
     Active Substance: STANOZOLOL
     Indication: MUSCLE BUILDING THERAPY
  2. SOMATROPIN. [Suspect]
     Active Substance: SOMATROPIN
     Indication: MUSCLE BUILDING THERAPY
  3. OXYMETHOLONE [Suspect]
     Active Substance: OXYMETHOLONE
     Indication: MUSCLE BUILDING THERAPY
  4. TESTOSTERONE. [Suspect]
     Active Substance: TESTOSTERONE
     Indication: MUSCLE BUILDING THERAPY

REACTIONS (2)
  - Aortic aneurysm [Unknown]
  - Drug abuse [Unknown]
